FAERS Safety Report 24060973 (Version 1)
Quarter: 2024Q3

REPORT INFORMATION
  Report Type: Spontaneous
  Country: US (occurrence: US)
  Receive Date: 20240708
  Receipt Date: 20240708
  Transmission Date: 20241017
  Serious: No
  Sender: SANOFI AVENTIS
  Company Number: US-SA-SAC20240702000718

PATIENT
  Sex: Female
  Weight: 72.5 kg

DRUGS (1)
  1. DUPIXENT [Suspect]
     Active Substance: DUPILUMAB
     Indication: Neurodermatitis
     Dosage: DOSE PRESCRIBED - 1 PEN FREQUENCY-:EVERY 14 DAYS
     Route: 058

REACTIONS (3)
  - Skin swelling [Unknown]
  - Gait disturbance [Unknown]
  - Rash [Unknown]
